FAERS Safety Report 7624903-X (Version None)
Quarter: 2011Q3

REPORT INFORMATION
  Report Type: 
  Country: None (occurrence: None)
  Receive Date: 20110720
  Receipt Date: 20110711
  Transmission Date: 20111222
  Serious: Yes (Hospitalization, Other)
  Sender: FDA-Public Use
  Company Number: US-MERCK-1102USA02272

PATIENT
  Age: 52 Year
  Sex: Female
  Weight: 52 kg

DRUGS (40)
  1. FOSAMAX [Suspect]
     Route: 048
  2. FOSAMAX PLUS D [Suspect]
     Route: 065
  3. EVISTA [Concomitant]
     Indication: OSTEOPOROSIS
     Route: 065
     Dates: start: 20070101, end: 20070101
  4. ANTIMICROBIAL (UNSPECIFIED) [Concomitant]
     Route: 065
  5. EFFEXOR [Concomitant]
     Route: 048
  6. [THERAPY UNSPECIFIED] [Concomitant]
     Route: 065
  7. FOSAMAX PLUS D [Suspect]
     Route: 065
  8. ALLEGRA [Concomitant]
     Indication: HYPERSENSITIVITY
     Route: 065
  9. ASCORBIC ACID [Concomitant]
     Route: 065
  10. CYANOCOBALAMIN [Concomitant]
     Route: 065
  11. FOSAMAX [Suspect]
     Indication: OSTEOPOROSIS
     Route: 048
     Dates: start: 20000101, end: 20070701
  12. CORTICOSTEROIDS (UNSPECIFIED) [Concomitant]
     Route: 065
     Dates: start: 20050101, end: 20110101
  13. CLARINEX [Concomitant]
     Indication: HYPERSENSITIVITY
     Route: 048
  14. CALCIUM (UNSPECIFIED) [Concomitant]
     Route: 065
  15. FOLIC ACID [Concomitant]
     Route: 065
  16. INFLUENZA VIRUS VACCINE (UNSPECIFIED) [Concomitant]
     Route: 065
     Dates: start: 20080101
  17. FOSAMAX [Suspect]
     Route: 048
     Dates: start: 20081001, end: 20100401
  18. VITAMIN D (UNSPECIFIED) [Concomitant]
     Route: 065
  19. CITRUCEL (METHYLCELLULOSE) [Concomitant]
     Route: 065
  20. PNEUMOCOCCAL VACCINE (UNSPECIFIED) [Concomitant]
     Route: 065
     Dates: start: 20070101
  21. CITRICAL [Concomitant]
     Route: 065
  22. ANALGESIC (UNSPECIFIED) [Concomitant]
     Route: 065
  23. FOSAMAX [Suspect]
     Route: 048
     Dates: start: 20081001, end: 20100401
  24. PREMARIN [Concomitant]
     Indication: HORMONE THERAPY
     Route: 065
     Dates: start: 20040101, end: 20060101
  25. LOVAZA [Concomitant]
     Route: 065
  26. CHOLECALCIFEROL [Concomitant]
     Route: 065
  27. CALCIUM CITRATE [Concomitant]
     Route: 065
  28. FOSAMAX [Suspect]
     Indication: OSTEOPENIA
     Route: 048
     Dates: start: 20000101, end: 20070701
  29. ONE-A-DAY ESSENTIAL VITAMINS [Concomitant]
     Route: 065
  30. VITAMINS (UNSPECIFIED) [Concomitant]
     Route: 065
  31. FOSAMAX PLUS D [Suspect]
     Indication: OSTEOPOROSIS
     Route: 048
     Dates: start: 20070801, end: 20081001
  32. METHYLPRED ORAL [Concomitant]
     Indication: HYPERSENSITIVITY
     Route: 065
  33. IRON (UNSPECIFIED) [Concomitant]
     Route: 065
     Dates: start: 20050401, end: 20050501
  34. BONIVA [Concomitant]
     Indication: OSTEOPOROSIS
     Route: 065
     Dates: start: 20100319
  35. FOSAMAX [Suspect]
     Route: 048
  36. FOSAMAX PLUS D [Suspect]
     Indication: OSTEOPENIA
     Route: 048
     Dates: start: 20070801, end: 20081001
  37. VITAMIN E [Concomitant]
     Route: 065
  38. OMEGA-3 MARINE TRIGLYCERIDES [Concomitant]
     Route: 065
  39. IRON (UNSPECIFIED) [Concomitant]
     Route: 048
  40. CALCIUM (UNSPECIFIED) AND VITAMIN D (UNSPECIFIED) [Concomitant]
     Route: 048

REACTIONS (24)
  - ANASTOMOTIC ULCER [None]
  - HOT FLUSH [None]
  - FEMUR FRACTURE [None]
  - IRON DEFICIENCY ANAEMIA [None]
  - ACUTE SINUSITIS [None]
  - BREAST PAIN [None]
  - LICHEN SCLEROSUS [None]
  - DRUG HYPERSENSITIVITY [None]
  - FALL [None]
  - FIBROADENOMA OF BREAST [None]
  - GASTROINTESTINAL DISORDER [None]
  - DRUG INEFFECTIVE [None]
  - GASTROENTERITIS [None]
  - HAEMORRHAGIC DISORDER [None]
  - FIBROCYSTIC BREAST DISEASE [None]
  - PAIN IN EXTREMITY [None]
  - SHIGELLA INFECTION [None]
  - MIGRAINE [None]
  - OSTEOARTHRITIS [None]
  - BLOOD TRIGLYCERIDES INCREASED [None]
  - CARDIAC FAILURE CONGESTIVE [None]
  - ABDOMINAL PAIN UPPER [None]
  - MORTON'S NEUROMA [None]
  - NASOPHARYNGITIS [None]
